FAERS Safety Report 8992107 (Version 2)
Quarter: 2013Q1

REPORT INFORMATION
  Report Type: Spontaneous
  Country: IL (occurrence: IL)
  Receive Date: 20121231
  Receipt Date: 20130104
  Transmission Date: 20140127
  Serious: Yes (Hospitalization)
  Sender: FDA-Public Use
  Company Number: IL-009507513-1212ISR010782

PATIENT
  Age: 62 Year
  Sex: Male

DRUGS (5)
  1. JANUET [Suspect]
     Indication: DIABETES MELLITUS
     Dosage: 50/850 MG, BID
     Route: 048
     Dates: start: 2012
  2. OMEPRADEX [Concomitant]
  3. MICROPIRIN [Concomitant]
  4. NORMITEN [Concomitant]
  5. CARDILOC [Concomitant]

REACTIONS (3)
  - Yellow skin [Not Recovered/Not Resolved]
  - Blood glucose decreased [Unknown]
  - Haemolytic anaemia [Not Recovered/Not Resolved]
